FAERS Safety Report 24206842 (Version 2)
Quarter: 2024Q3

REPORT INFORMATION
  Report Type: Spontaneous
  Country: US (occurrence: US)
  Receive Date: 20240813
  Receipt Date: 20240921
  Transmission Date: 20241017
  Serious: No
  Sender: Haleon PLC
  Company Number: US-HALEON-2191715

PATIENT
  Sex: Female

DRUGS (1)
  1. JUNIOR STRENGTH ADVIL [Suspect]
     Active Substance: IBUPROFEN
     Indication: Product use in unapproved indication
     Dates: start: 20240811

REACTIONS (2)
  - Product use issue [Unknown]
  - Product complaint [Unknown]
